FAERS Safety Report 6743477-9 (Version None)
Quarter: 2010Q2

REPORT INFORMATION
  Report Type: 
  Country: None (occurrence: None)
  Receive Date: 20100527
  Receipt Date: 20100514
  Transmission Date: 20101027
  Serious: Yes (Other)
  Sender: FDA-Public Use
  Company Number: NO-MYLANLABS-2010S1008795

PATIENT
  Age: 45 Year
  Sex: Female

DRUGS (1)
  1. FLUOXETINE [Suspect]
     Indication: DEPRESSION
     Route: 048
     Dates: start: 20100401, end: 20100519

REACTIONS (9)
  - ANXIETY [None]
  - BURNING SENSATION [None]
  - DYSURIA [None]
  - INSOMNIA [None]
  - MIDDLE INSOMNIA [None]
  - RESTLESSNESS [None]
  - SUICIDAL IDEATION [None]
  - TENSION [None]
  - TREMOR [None]
